FAERS Safety Report 7157276-X (Version None)
Quarter: 2010Q4

REPORT INFORMATION
  Report Type: 
  Country: None (occurrence: None)
  Receive Date: 20101214
  Receipt Date: 20101209
  Transmission Date: 20110411
  Serious: Yes (Life-Threatening, Hospitalization)
  Sender: FDA-Public Use
  Company Number: PHHY2010JP65047

PATIENT
  Sex: Male
  Weight: 21 kg

DRUGS (1)
  1. TEGRETOL [Suspect]
     Indication: EPILEPSY
     Dosage: 300 MG, BID
     Route: 048
     Dates: start: 20090401

REACTIONS (13)
  - ABDOMINAL PAIN [None]
  - ATELECTASIS [None]
  - C-REACTIVE PROTEIN INCREASED [None]
  - ENTEROCOLITIS [None]
  - HERPES ZOSTER [None]
  - HYPOGAMMAGLOBULINAEMIA [None]
  - IMMUNODEFICIENCY [None]
  - NASOPHARYNGITIS [None]
  - PLEURAL FIBROSIS [None]
  - PLEURISY [None]
  - PNEUMONIA [None]
  - PYREXIA [None]
  - WHITE BLOOD CELL COUNT INCREASED [None]
